FAERS Safety Report 16296679 (Version 3)
Quarter: 2019Q3

REPORT INFORMATION
  Report Type: Spontaneous
  Country: US (occurrence: US)
  Receive Date: 20190510
  Receipt Date: 20190823
  Transmission Date: 20191004
  Serious: Yes (Hospitalization)
  Sender: FDA-Public Use
  Company Number: US-SHIRE-US201915266

PATIENT
  Sex: Female
  Weight: 86.62 kg

DRUGS (1)
  1. GATTEX [Suspect]
     Active Substance: TEDUGLUTIDE\WATER
     Indication: SHORT-BOWEL SYNDROME
     Dosage: 3.5 MILLIGRAM
     Route: 058
     Dates: start: 20190506

REACTIONS (4)
  - Fluid overload [Unknown]
  - Product dose omission [Unknown]
  - Dyspnoea [Unknown]
  - Weight increased [Unknown]
